FAERS Safety Report 8791347 (Version 1)
Quarter: 2012Q4

REPORT INFORMATION
  Report Type: Spontaneous
  Country: GB (occurrence: None)
  Receive Date: 20120912
  Receipt Date: 20120912
  Transmission Date: 20130627
  Serious: Yes (Death, Other)
  Sender: FDA-Public Use
  Company Number: GB-BANPHARM-20120104

PATIENT
  Age: 1 Year
  Sex: Male

DRUGS (3)
  1. NUROFEN [Suspect]
     Indication: CHICKENPOX
  2. ANTIVIRAL (UNSPECIFIED) [Suspect]
     Indication: CHICKENPOX
  3. PARACETAMOL [Suspect]
     Indication: CHICKENPOX

REACTIONS (7)
  - Pneumonia [None]
  - Dyspnoea [None]
  - Pyrexia [None]
  - Tremor [None]
  - Pain [None]
  - Rash [None]
  - General physical health deterioration [None]
